FAERS Safety Report 5924626-9 (Version None)
Quarter: 2008Q4

REPORT INFORMATION
  Report Type: 
  Country: None (occurrence: None)
  Receive Date: 20081016
  Receipt Date: 20081003
  Transmission Date: 20090506
  Serious: Yes (Other)
  Sender: FDA-Public Use
  Company Number: US-1167430

PATIENT
  Age: 59 Year
  Sex: Female

DRUGS (6)
  1. FLUORESCITE [Suspect]
     Indication: CSF TEST
     Dosage: 0.5 ML (50 MG) IN 9.5 ML CSF INJECTED IT INTRATHECAL
     Route: 037
  2. THIOPENTAL SODIUM [Concomitant]
  3. MIDAZOLAM HCL [Concomitant]
  4. SUCCINYLCHOLINE CHLORIDE [Concomitant]
  5. ISOFLURANE [Concomitant]
  6. FENTANYL [Concomitant]

REACTIONS (15)
  - BLOOD GLUCOSE INCREASED [None]
  - COGNITIVE DISORDER [None]
  - CONVULSION [None]
  - CSF PROTEIN INCREASED [None]
  - DECUBITUS ULCER [None]
  - EYE PAIN [None]
  - HYPOGLYCAEMIA [None]
  - INTRACRANIAL HYPOTENSION [None]
  - MUSCULOSKELETAL STIFFNESS [None]
  - OEDEMA [None]
  - OPERATIVE HAEMORRHAGE [None]
  - PLEOCYTOSIS [None]
  - SINUSITIS [None]
  - STATUS EPILEPTICUS [None]
  - TREMOR [None]
